FAERS Safety Report 21670360 (Version 2)
Quarter: 2022Q4

REPORT INFORMATION
  Report Type: Spontaneous
  Country: US (occurrence: US)
  Receive Date: 20221201
  Receipt Date: 20221228
  Transmission Date: 20230112
  Serious: Yes (Hospitalization)
  Sender: FDA-Public Use
  Company Number: US-TEVA-2022-US-2830314

PATIENT
  Age: 57 Year
  Sex: Female

DRUGS (22)
  1. DEXAMETHASONE [Suspect]
     Active Substance: DEXAMETHASONE
     Indication: Acute respiratory distress syndrome
     Dosage: 30 MILLIGRAM DAILY;
     Route: 065
  2. DEXAMETHASONE [Suspect]
     Active Substance: DEXAMETHASONE
     Dosage: 18 MILLIGRAM DAILY;
     Route: 065
  3. REMDESIVIR [Suspect]
     Active Substance: REMDESIVIR
     Indication: COVID-19
     Dosage: 200 MG
     Route: 042
  4. REMDESIVIR [Suspect]
     Active Substance: REMDESIVIR
     Dosage: 100 MG
     Route: 042
  5. TOCILIZUMAB [Suspect]
     Active Substance: TOCILIZUMAB
     Indication: Acute respiratory distress syndrome
     Dosage: 400 MG
     Route: 042
  6. ZITHROMAX [Concomitant]
     Active Substance: AZITHROMYCIN DIHYDRATE
     Indication: Evidence based treatment
     Dosage: 250 MG
     Route: 065
  7. ZITHROMAX [Concomitant]
     Active Substance: AZITHROMYCIN DIHYDRATE
     Dosage: 500 MILLIGRAM DAILY;
     Route: 042
  8. VANCOMYCIN [Concomitant]
     Active Substance: VANCOMYCIN
     Indication: Evidence based treatment
     Dosage: 1 GRAM
     Route: 042
  9. ONDANSETRON [Concomitant]
     Active Substance: ONDANSETRON
     Indication: Evidence based treatment
     Dosage: 4 MG
     Route: 042
  10. TYLENOL [Concomitant]
     Active Substance: ACETAMINOPHEN
     Indication: Pyrexia
     Dosage: 2600 MILLIGRAM DAILY;
     Route: 065
  11. TYLENOL [Concomitant]
     Active Substance: ACETAMINOPHEN
     Indication: Pain
  12. VITAMIN C [Concomitant]
     Active Substance: ASCORBIC ACID
     Indication: Pneumonia
     Dosage: 2000 MILLIGRAM DAILY;
     Route: 048
  13. VITAMIN D [Concomitant]
     Active Substance: VITAMIN D NOS
     Indication: Pneumonia
     Dosage: 400 MG
     Route: 048
  14. ZINC [Concomitant]
     Active Substance: ZINC
     Indication: Pneumonia
     Dosage: 220 MILLIGRAM DAILY;
     Route: 048
  15. MELATONIN [Concomitant]
     Active Substance: MELATONIN
     Indication: Pneumonia
     Dosage: 10 MILLIGRAM DAILY;
     Route: 048
  16. QUERCETIN [Concomitant]
     Active Substance: QUERCETIN
     Indication: Pneumonia
     Dosage: 500 MILLIGRAM DAILY;
     Route: 048
  17. ASPIRIN [Concomitant]
     Active Substance: ASPIRIN
     Indication: Pneumonia
     Dosage: 81 MILLIGRAM DAILY;
     Route: 048
  18. METHYLPREDNISOLONE [Concomitant]
     Active Substance: METHYLPREDNISOLONE
     Indication: Pneumonia
     Dosage: 250 MILLIGRAM DAILY;
     Route: 042
  19. ENOXAPARIN SODIUM [Concomitant]
     Active Substance: ENOXAPARIN SODIUM
     Indication: Thrombosis prophylaxis
     Dosage: 40 MILLIGRAM DAILY;
     Route: 058
  20. FAMOTIDINE [Concomitant]
     Active Substance: FAMOTIDINE
     Indication: Pneumonia
     Dosage: 40 MILLIGRAM DAILY;
     Route: 042
  21. CEFTRIAXONE [Concomitant]
     Active Substance: CEFTRIAXONE
     Indication: Pneumonia
     Dosage: 1 GRAM DAILY;
     Route: 042
  22. DOXYCYCLINE [Concomitant]
     Active Substance: DOXYCYCLINE
     Indication: Product used for unknown indication
     Dosage: 200 MILLIGRAM DAILY;
     Route: 042

REACTIONS (2)
  - Drug eruption [Unknown]
  - Drug ineffective [Unknown]
